FAERS Safety Report 19762522 (Version 2)
Quarter: 2021Q3

REPORT INFORMATION
  Report Type: Other
  Country: US (occurrence: US)
  Receive Date: 20210830
  Receipt Date: 20210901
  Transmission Date: 20211014
  Serious: Yes (Death, Other)
  Sender: FDA-Public Use
  Company Number: US-APOTEX-2021AP041090

PATIENT
  Age: 61 Year
  Sex: Male

DRUGS (1)
  1. RANITIDINE TABLETS [Suspect]
     Active Substance: RANITIDINE HYDROCHLORIDE
     Indication: DYSPEPSIA
     Dosage: DAILY
     Route: 065
     Dates: start: 201501, end: 202001

REACTIONS (3)
  - Hepatic cancer [Fatal]
  - Colon cancer [Fatal]
  - Anal cancer [Fatal]

NARRATIVE: CASE EVENT DATE: 20200127
